FAERS Safety Report 7737387-8 (Version None)
Quarter: 2011Q3

REPORT INFORMATION
  Report Type: 
  Country: None (occurrence: None)
  Receive Date: 20110908
  Receipt Date: 20110901
  Transmission Date: 20111222
  Serious: Yes (Hospitalization)
  Sender: FDA-Public Use
  Company Number: US-ALEXION-A201100752

PATIENT
  Sex: Male

DRUGS (9)
  1. SOLIRIS [Suspect]
     Dosage: 900 MG, Q2W
     Route: 042
     Dates: start: 20100101
  2. LEVOTHYROXINE SODIUM [Concomitant]
     Dosage: 0.125 UG, QD
     Route: 048
     Dates: start: 19970101
  3. SOLIRIS [Suspect]
     Dosage: 600 MG, QW
     Route: 042
     Dates: start: 20090901, end: 20091101
  4. SOLIRIS [Suspect]
     Dosage: 300 MG, Q2W
     Route: 042
     Dates: end: 20110101
  5. SOLIRIS [Suspect]
     Dosage: 300 MG, Q2W
     Route: 042
     Dates: start: 20110504
  6. SOLIRIS [Suspect]
     Indication: PAROXYSMAL NOCTURNAL HAEMOGLOBINURIA
     Route: 042
  7. SOLIRIS [Suspect]
     Dosage: UNK
     Route: 042
     Dates: start: 20091230
  8. SOLIRIS [Suspect]
     Dosage: 600 MG Q2W
     Route: 042
     Dates: start: 20101020
  9. PREDNISONE [Concomitant]
     Dosage: UNK
     Dates: start: 19970101

REACTIONS (5)
  - PAROXYSMAL NOCTURNAL HAEMOGLOBINURIA [None]
  - CONDITION AGGRAVATED [None]
  - OESOPHAGEAL SPASM [None]
  - LARYNGOSPASM [None]
  - CHOLELITHIASIS [None]
